FAERS Safety Report 22912195 (Version 3)
Quarter: 2023Q4

REPORT INFORMATION
  Report Type: Report from Study
  Country: CN (occurrence: CN)
  Receive Date: 20230906
  Receipt Date: 20231207
  Transmission Date: 20240109
  Serious: Yes (Hospitalization)
  Sender: FDA-Public Use
  Company Number: CN-ANTENGENE-20230801956

PATIENT
  Age: 52 Year
  Sex: Male
  Weight: 47.5 kg

DRUGS (13)
  1. SELINEXOR [Suspect]
     Active Substance: SELINEXOR
     Indication: Diffuse large B-cell lymphoma
     Dosage: 60 MG, WEEKLY
     Route: 048
     Dates: start: 20230804, end: 20230829
  2. SELINEXOR [Suspect]
     Active Substance: SELINEXOR
     Dosage: 60 MG, WEEKLY
     Route: 048
     Dates: start: 20230903
  3. SELINEXOR [Suspect]
     Active Substance: SELINEXOR
     Indication: Diffuse large B-cell lymphoma
     Dosage: 630 MG, CYCLIC
     Route: 042
     Dates: start: 20230804, end: 20230829
  4. SELINEXOR [Suspect]
     Active Substance: SELINEXOR
     Dosage: 630 MG, CYCLIC
     Route: 042
     Dates: start: 20230903
  5. CYCLOPHOSPHAMIDE [Suspect]
     Active Substance: CYCLOPHOSPHAMIDE
     Indication: Diffuse large B-cell lymphoma
     Dosage: 1200 MG, CYCLIC
     Route: 042
     Dates: start: 20230805, end: 20230829
  6. CYCLOPHOSPHAMIDE [Suspect]
     Active Substance: CYCLOPHOSPHAMIDE
     Dosage: 1200 MG, CYCLIC
     Route: 042
     Dates: start: 20230903
  7. VINDESINE [Suspect]
     Active Substance: VINDESINE
     Indication: Diffuse large B-cell lymphoma
     Dosage: 4 MG, CYCLIC
     Route: 042
     Dates: start: 20230805, end: 20230829
  8. VINDESINE [Suspect]
     Active Substance: VINDESINE
     Dosage: 4 MG, CYCLIC
     Route: 042
     Dates: start: 20230903
  9. DOXORUBICIN [Suspect]
     Active Substance: DOXORUBICIN
     Indication: Diffuse large B-cell lymphoma
     Dosage: 40 MG, CYCLIC
     Route: 042
     Dates: start: 20230805, end: 20230829
  10. DOXORUBICIN [Suspect]
     Active Substance: DOXORUBICIN
     Dosage: 40 MG, CYCLIC
     Route: 042
     Dates: start: 20230903
  11. DEXAMETHASONE [Suspect]
     Active Substance: DEXAMETHASONE
     Indication: Diffuse large B-cell lymphoma
     Dosage: 15 MG, QD
     Route: 042
     Dates: start: 20230804, end: 20230829
  12. DEXAMETHASONE [Suspect]
     Active Substance: DEXAMETHASONE
     Dosage: 15 MG, QD
     Route: 042
     Dates: start: 20230903
  13. CETIRIZINE HYDROCHLORIDE [Concomitant]
     Active Substance: CETIRIZINE HYDROCHLORIDE
     Indication: Antiallergic therapy
     Dosage: 1 DOSAGE FORM, QD
     Route: 048
     Dates: start: 20230825

REACTIONS (1)
  - Pneumocystis jirovecii pneumonia [Recovered/Resolved]

NARRATIVE: CASE EVENT DATE: 20230827
